FAERS Safety Report 8447793-4 (Version None)
Quarter: 2012Q2

REPORT INFORMATION
  Report Type: 
  Country: None (occurrence: None)
  Receive Date: 20120619
  Receipt Date: 20120606
  Transmission Date: 20120825
  Serious: Yes (Life-Threatening)
  Sender: FDA-Public Use
  Company Number: US-COVIDIEN/TYCO HEALTHCARE/MALLINCKRODT-T201202517

PATIENT
  Age: 2 Month
  Weight: 3.8 kg

DRUGS (3)
  1. FENTANYL CITRATE [Suspect]
     Indication: SEDATION
     Dosage: 0.5 MCG/KG, SINGLE
  2. MIDAZOLAM [Concomitant]
     Indication: SEDATION
     Dosage: 0.05 MG/KG
  3. FENTANYL CITRATE [Suspect]
     Dosage: 1 MCG/KG, SINGLE

REACTIONS (2)
  - MUSCLE RIGIDITY [None]
  - NEONATAL RESPIRATORY FAILURE [None]
